FAERS Safety Report 22026750 (Version 1)
Quarter: 2023Q1

REPORT INFORMATION
  Report Type: Spontaneous
  Country: US (occurrence: None)
  Receive Date: 20230223
  Receipt Date: 20230223
  Transmission Date: 20230418
  Serious: No
  Sender: FDA-Public Use
  Company Number: US-ROCHE-3188415

PATIENT
  Sex: Female

DRUGS (6)
  1. XOLAIR [Suspect]
     Active Substance: OMALIZUMAB
     Indication: Asthma
     Route: 065
  2. XOPENEX [Concomitant]
     Active Substance: LEVALBUTEROL HYDROCHLORIDE
  3. CROMOLYN SODIUM [Concomitant]
     Active Substance: CROMOLYN SODIUM
  4. KETOTIFEN [Concomitant]
     Active Substance: KETOTIFEN
  5. QUERCETIN [Concomitant]
     Active Substance: QUERCETIN
  6. ASPIRIN [Concomitant]
     Active Substance: ASPIRIN

REACTIONS (4)
  - Migraine [Unknown]
  - Arthralgia [Unknown]
  - Malaise [Unknown]
  - Fatigue [Unknown]
